FAERS Safety Report 10892106 (Version 2)
Quarter: 2015Q2

REPORT INFORMATION
  Report Type: Spontaneous
  Country: FR (occurrence: FR)
  Receive Date: 20150306
  Receipt Date: 20150511
  Transmission Date: 20150821
  Serious: Yes (Death)
  Sender: FDA-Public Use
  Company Number: FR-SA-2015SA012575

PATIENT
  Age: 95 Year
  Sex: Male
  Weight: 83 kg

DRUGS (1)
  1. LOVENOX [Suspect]
     Active Substance: ENOXAPARIN SODIUM
     Indication: PHLEBITIS
     Route: 058
     Dates: start: 20150128, end: 20150129

REACTIONS (2)
  - Incorrect dose administered [Unknown]
  - Death [Fatal]

NARRATIVE: CASE EVENT DATE: 20150129
